FAERS Safety Report 10368842 (Version 1)
Quarter: 2014Q3

REPORT INFORMATION
  Report Type: Spontaneous
  Country: US (occurrence: US)
  Receive Date: 20140807
  Receipt Date: 20140807
  Transmission Date: 20150326
  Serious: Yes (Other)
  Sender: FDA-Public Use
  Company Number: US-PFIZER INC-2014216632

PATIENT
  Sex: Female

DRUGS (4)
  1. CYTOMEL [Suspect]
     Active Substance: LIOTHYRONINE SODIUM
     Dosage: UNK
     Dates: start: 201310
  2. TIROSINT [Suspect]
     Active Substance: LEVOTHYROXINE SODIUM
     Dosage: UNK
  3. TIROSINT [Suspect]
     Active Substance: LEVOTHYROXINE SODIUM
     Dosage: UNK
     Dates: start: 201310
  4. CYTOMEL [Suspect]
     Active Substance: LIOTHYRONINE SODIUM
     Dosage: 5 UG, 2X/DAY

REACTIONS (8)
  - Panic attack [Unknown]
  - Food allergy [Unknown]
  - Hypothyroidism [Unknown]
  - Respiratory tract congestion [Unknown]
  - Throat irritation [Unknown]
  - Dysphonia [Unknown]
  - Mental disorder [Unknown]
  - Anxiety [Unknown]
